FAERS Safety Report 24101645 (Version 1)
Quarter: 2024Q3

REPORT INFORMATION
  Report Type: Report from Study
  Country: US (occurrence: None)
  Receive Date: 20240717
  Receipt Date: 20240717
  Transmission Date: 20241017
  Serious: Yes (Hospitalization)
  Sender: ASTRAZENECA
  Company Number: 2020SE19870

PATIENT
  Sex: Female

DRUGS (1)
  1. FASENRA [Suspect]
     Active Substance: BENRALIZUMAB
     Indication: Asthma
     Dosage: 30 MG INJECTION ONCE EVERY FOUR WEEKS FOR THREE DOSES THEN ONCE EVERY EIGHT WEEKS
     Route: 058

REACTIONS (3)
  - Influenza [Unknown]
  - Illness [Unknown]
  - Productive cough [Not Recovered/Not Resolved]
